FAERS Safety Report 19667603 (Version 1)
Quarter: 2021Q3

REPORT INFORMATION
  Report Type: Spontaneous
  Country: US (occurrence: US)
  Receive Date: 20210806
  Receipt Date: 20210806
  Transmission Date: 20211014
  Serious: No
  Sender: FDA-Public Use
  Company Number: US-MAYNE PHARMA-2020MYN000442

PATIENT

DRUGS (1)
  1. NYSTATIN. [Suspect]
     Active Substance: NYSTATIN
     Indication: FUNGAL SKIN INFECTION
     Dosage: UNK UNK, 4 TIMES A DAY
     Route: 061
     Dates: start: 20200821, end: 202008

REACTIONS (4)
  - Application site rash [Recovering/Resolving]
  - Skin weeping [Not Recovered/Not Resolved]
  - Application site haemorrhage [Unknown]
  - Application site pain [Not Recovered/Not Resolved]

NARRATIVE: CASE EVENT DATE: 202008
